FAERS Safety Report 9144430 (Version 1)
Quarter: 2013Q1

REPORT INFORMATION
  Report Type: Spontaneous
  Country: JP (occurrence: JP)
  Receive Date: 20130306
  Receipt Date: 20130306
  Transmission Date: 20140127
  Serious: Yes (Other)
  Sender: FDA-Public Use
  Company Number: JP-ROCHE-1197066

PATIENT
  Sex: Female

DRUGS (7)
  1. HERCEPTIN [Suspect]
     Indication: BREAST CANCER
     Dosage: DOSAGE IS UNCERTAIN.
     Route: 041
  2. DOCETAXEL [Concomitant]
     Indication: BREAST CANCER
     Dosage: DOSAGE IS UNCERTAIN.
     Route: 041
  3. DECADRON [Concomitant]
     Dosage: DOSAGE IS UNCERTAIN.
     Route: 042
  4. NAUZELIN [Concomitant]
     Dosage: DOSAGE IS UNCERTAIN.
     Route: 048
  5. WYPAX [Concomitant]
     Dosage: DOSAGE IS UNCERTAIN.
     Route: 048
  6. EMEND [Concomitant]
     Dosage: DOSAGE IS UNCERTAIN.
     Route: 048
  7. AZUCURENIN S [Concomitant]
     Dosage: DOSAGE IS UNCERTAIN.
     Route: 048

REACTIONS (5)
  - Peptic ulcer haemorrhage [Unknown]
  - Intestinal ulcer [Unknown]
  - Haematochezia [Unknown]
  - Nausea [Unknown]
  - Vomiting [Unknown]
